FAERS Safety Report 6196024-7 (Version None)
Quarter: 2009Q2

REPORT INFORMATION
  Report Type: 
  Country: None (occurrence: None)
  Receive Date: 20090520
  Receipt Date: 20040518
  Transmission Date: 20091009
  Serious: Yes (Hospitalization, Disabling)
  Sender: FDA-Public Use
  Company Number: NL-ROCHE-600030

PATIENT
  Sex: Male

DRUGS (7)
  1. CAPECITABINE [Suspect]
     Indication: COLORECTAL CANCER
     Dosage: CYCLE 1
     Route: 048
     Dates: start: 20040421, end: 20040505
  2. CAPECITABINE [Suspect]
     Dosage: DAILY DOSE WAS REPORTED AS 2DD 1800 MG.
     Route: 048
     Dates: start: 20040512, end: 20040514
  3. IRINOTECAN HCL [Suspect]
     Indication: COLORECTAL CANCER
     Route: 042
     Dates: start: 20040421
  4. IRINOTECAN HCL [Suspect]
     Route: 042
     Dates: start: 20040512
  5. ACETAMINOPHEN [Concomitant]
  6. ATENOLOL [Concomitant]
  7. ATENOLOL [Concomitant]

REACTIONS (2)
  - CEREBROVASCULAR ACCIDENT [None]
  - HEMIPARESIS [None]
